FAERS Safety Report 8641401 (Version 2)
Quarter: 2012Q4

REPORT INFORMATION
  Report Type: Spontaneous
  Country: US (occurrence: None)
  Receive Date: 20120618
  Receipt Date: 20120821
  Transmission Date: 20130627
  Serious: Yes (Other)
  Sender: FDA-Public Use
  Company Number: ADR-2012-01115

PATIENT
  Sex: Male

DRUGS (3)
  1. BACLOFEN [Suspect]
     Indication: PAIN
     Route: 037
  2. BACLOFEN [Suspect]
     Indication: POST LAMINECTOMY SYNDROME
     Route: 037
  3. SEE IMAGE [Concomitant]

REACTIONS (7)
  - Haematoma [None]
  - Pruritus [None]
  - Sciatica [None]
  - Device dislocation [None]
  - Pain [None]
  - Vomiting [None]
  - Headache [None]
